FAERS Safety Report 6011474-7 (Version None)
Quarter: 2008Q4

REPORT INFORMATION
  Report Type: 
  Country: None (occurrence: None)
  Receive Date: 20081218
  Receipt Date: 20080131
  Transmission Date: 20090506
  Serious: No
  Sender: FDA-Public Use
  Company Number: US-ABBOTT-08P-163-0435970-00

PATIENT
  Sex: Female
  Weight: 61.29 kg

DRUGS (4)
  1. MERIDIA [Suspect]
     Indication: DIABETES MELLITUS
     Route: 048
  2. MERIDIA [Suspect]
     Indication: HYPERTENSION
  3. BETA BLOCKERS [Suspect]
     Indication: HYPERTENSION
     Route: 048
  4. ACE INHIBITORS [Suspect]
     Indication: HYPERTENSION
     Route: 048

REACTIONS (3)
  - HEPATIC ENZYME INCREASED [None]
  - IMMUNE SYSTEM DISORDER [None]
  - PSORIASIS [None]
